FAERS Safety Report 23118726 (Version 1)
Quarter: 2023Q4

REPORT INFORMATION
  Report Type: Spontaneous
  Country: DK (occurrence: DK)
  Receive Date: 20231028
  Receipt Date: 20231028
  Transmission Date: 20240109
  Serious: Yes (Other)
  Sender: FDA-Public Use
  Company Number: None

PATIENT
  Age: 79 Year
  Sex: Female
  Weight: 55 kg

DRUGS (10)
  1. OXYCODONE HYDROCHLORIDE [Suspect]
     Active Substance: OXYCODONE HYDROCHLORIDE
     Indication: Pain
     Dates: start: 20230814, end: 20230815
  2. GABAPENSTAD [Concomitant]
     Indication: Pain
     Dates: start: 20230707
  3. FUROSEMIDE [Concomitant]
     Active Substance: FUROSEMIDE
     Indication: Diuretic therapy
     Dates: start: 20210622
  4. POTASSIUM CHLORIDE [Concomitant]
     Active Substance: POTASSIUM CHLORIDE
     Indication: Mineral supplementation
     Dates: start: 20230719
  5. MEBEVERINHYDROCHLORID ARISTO [Concomitant]
     Indication: Abdominal pain
     Dates: start: 20230703
  6. TIBOLON ARISTO [Concomitant]
     Indication: Hormone therapy
     Dates: start: 20140305
  7. LEVOTHYROXINE [Concomitant]
     Active Substance: LEVOTHYROXINE
     Indication: Hypothyroidism
     Dates: start: 20140210
  8. CARVEDILOL [Concomitant]
     Active Substance: CARVEDILOL
     Indication: Cardiac disorder
     Dates: start: 20230628
  9. FELODIPIN ACTAVIS [Concomitant]
     Indication: Cardiac disorder
     Dates: start: 20230704
  10. FEXOFENADINE [Concomitant]
     Active Substance: FEXOFENADINE HYDROCHLORIDE
     Indication: Seasonal allergy
     Dates: start: 20140305

REACTIONS (3)
  - Hallucination [Unknown]
  - Delirium [Unknown]
  - Confusional state [Unknown]

NARRATIVE: CASE EVENT DATE: 20230815
